FAERS Safety Report 17016624 (Version 4)
Quarter: 2020Q2

REPORT INFORMATION
  Report Type: Spontaneous
  Country: US (occurrence: US)
  Receive Date: 20191111
  Receipt Date: 20200403
  Transmission Date: 20200713
  Serious: Yes (Other)
  Sender: FDA-Public Use
  Company Number: US-PFIZER INC-2019485875

PATIENT
  Age: 66 Year
  Sex: Female

DRUGS (1)
  1. LYRICA [Suspect]
     Active Substance: PREGABALIN
     Dosage: UNK

REACTIONS (7)
  - Asthma [Unknown]
  - Chronic obstructive pulmonary disease [Unknown]
  - Fibromyalgia [Unknown]
  - Diabetes mellitus [Unknown]
  - Burning sensation [Unknown]
  - Immune system disorder [Unknown]
  - Cardiac disorder [Unknown]
